FAERS Safety Report 12834889 (Version 3)
Quarter: 2016Q4

REPORT INFORMATION
  Report Type: Spontaneous
  Country: ES (occurrence: ES)
  Receive Date: 20161010
  Receipt Date: 20161111
  Transmission Date: 20170207
  Serious: Yes (Hospitalization, Other)
  Sender: FDA-Public Use
  Company Number: ES-ALEXION PHARMACEUTICALS INC-A201607510

PATIENT
  Sex: Female

DRUGS (1)
  1. SOLIRIS [Suspect]
     Active Substance: ECULIZUMAB
     Indication: HAEMOLYTIC URAEMIC SYNDROME
     Dosage: UNK UNK, QW
     Route: 042
     Dates: start: 20160930

REACTIONS (8)
  - Foetal death [Unknown]
  - Anuria [Unknown]
  - Exposure during pregnancy [Recovered/Resolved]
  - Leukopenia [Unknown]
  - Multiple organ dysfunction syndrome [Unknown]
  - Multimorbidity [Unknown]
  - Septic shock [Unknown]
  - Rash [Unknown]

NARRATIVE: CASE EVENT DATE: 201610
